FAERS Safety Report 9716942 (Version 1)
Quarter: 2013Q4

REPORT INFORMATION
  Report Type: Spontaneous
  Country: US (occurrence: US)
  Receive Date: 20131127
  Receipt Date: 20131127
  Transmission Date: 20140711
  Serious: No
  Sender: FDA-Public Use
  Company Number: US-GILEAD-2009-0020006

PATIENT
  Sex: Female
  Weight: 104.78 kg

DRUGS (13)
  1. LETAIRIS [Suspect]
     Indication: PULMONARY ARTERIAL HYPERTENSION
     Route: 048
     Dates: start: 20090107
  2. REVATIO [Concomitant]
     Route: 048
  3. NORVASC [Concomitant]
     Route: 048
  4. LISINOPRIL [Concomitant]
     Route: 048
  5. SINGULAIR [Concomitant]
     Route: 048
  6. MELOXICAM [Concomitant]
     Route: 048
  7. PROVENTIL SOLUTION [Concomitant]
     Route: 048
  8. COMBIVENT INHALER [Concomitant]
  9. SPIRONOLACTONE [Concomitant]
     Route: 048
  10. OS-CAL + D [Concomitant]
     Route: 048
  11. CENTRUM SILVER [Concomitant]
  12. VITAMIN C [Concomitant]
     Route: 048
  13. VITAMIN E [Concomitant]
     Route: 048

REACTIONS (7)
  - Heart rate increased [Unknown]
  - Gait disturbance [Unknown]
  - Lethargy [Unknown]
  - Epistaxis [Unknown]
  - Dyspnoea [Unknown]
  - Palpitations [Unknown]
  - Flushing [Unknown]
